FAERS Safety Report 24304690 (Version 4)
Quarter: 2024Q4

REPORT INFORMATION
  Report Type: Report from Study
  Country: CO (occurrence: CO)
  Receive Date: 20240910
  Receipt Date: 20241009
  Transmission Date: 20250115
  Serious: Yes (Other)
  Sender: JOHNSON AND JOHNSON
  Company Number: CO-JNJFOC-20240855096

PATIENT
  Age: 51 Year
  Sex: Female
  Weight: 90 kg

DRUGS (4)
  1. SIMPONI [Suspect]
     Active Substance: GOLIMUMAB
     Indication: Rheumatoid arthritis
     Route: 058
     Dates: start: 20240122
  2. SIMPONI [Suspect]
     Active Substance: GOLIMUMAB
     Dosage: V1: LAST DRUG APPLICATION WAS ON 13-JUL-2024?V4: LAST DRUG APPLICATION WAS ON 11-SEP-2024
     Route: 058
     Dates: start: 20240122
  3. RITUXIMAB [Suspect]
     Active Substance: RITUXIMAB
     Indication: Product used for unknown indication
     Route: 065
  4. AZATHIOPRINE [Concomitant]
     Active Substance: AZATHIOPRINE

REACTIONS (11)
  - Scleritis [Not Recovered/Not Resolved]
  - Dizziness [Recovered/Resolved]
  - Influenza [Unknown]
  - Anxiety [Unknown]
  - Depression [Unknown]
  - Swelling face [Not Recovered/Not Resolved]
  - Aphthous ulcer [Unknown]
  - Unevaluable event [Unknown]
  - Muscle spasms [Not Recovered/Not Resolved]
  - Pain in extremity [Not Recovered/Not Resolved]
  - Drug ineffective [Unknown]

NARRATIVE: CASE EVENT DATE: 20240101
